FAERS Safety Report 20603393 (Version 2)
Quarter: 2022Q2

REPORT INFORMATION
  Report Type: Report from Study
  Country: US (occurrence: US)
  Receive Date: 20220316
  Receipt Date: 20220615
  Transmission Date: 20220721
  Serious: Yes (Hospitalization)
  Sender: FDA-Public Use
  Company Number: US-PFIZER INC-202200385635

PATIENT
  Age: 75 Year
  Sex: Female
  Weight: 73 kg

DRUGS (18)
  1. IRINOTECAN HYDROCHLORIDE [Suspect]
     Active Substance: IRINOTECAN HYDROCHLORIDE
     Indication: Pancreatic carcinoma metastatic
     Dosage: 282 MG, DAY 1 AND 15 OF EVERY 28-DAYS CYCLE
     Route: 042
     Dates: start: 20220209, end: 20220209
  2. OXALIPLATIN [Suspect]
     Active Substance: OXALIPLATIN
     Indication: Pancreatic carcinoma metastatic
     Dosage: 159.8 MG, DAY 1 AND 15 OF EVERY 28-DAYS CYCLE
     Route: 042
     Dates: start: 20220209, end: 20220209
  3. LEUCOVORIN [Suspect]
     Active Substance: LEUCOVORIN
     Indication: Pancreatic carcinoma metastatic
     Dosage: 752 MG, DAY 1 AND 15 OF EVERY 28-DAYS CYCLE
     Route: 042
     Dates: start: 20220209, end: 20220209
  4. FLUOROURACIL [Suspect]
     Active Substance: FLUOROURACIL
     Indication: Pancreatic carcinoma metastatic
     Dosage: 4512 MG, DAYS 1, 3, 15 AND 17 OF EVERY 28-DAYS CYCLE
     Route: 042
     Dates: start: 20220209, end: 20220209
  5. GILORALIMAB [Suspect]
     Active Substance: GILORALIMAB
     Indication: Pancreatic carcinoma metastatic
     Dosage: 24.48 MG, DAY 3 OF EVERY 28-DAYS CYCLE
     Route: 042
     Dates: start: 20220211, end: 20220211
  6. BUDIGALIMAB [Suspect]
     Active Substance: BUDIGALIMAB
     Indication: Pancreatic carcinoma metastatic
     Dosage: 500 MG, DAY 3 OF EVERY 28-DAYS CYCLE
     Route: 042
     Dates: start: 20220211, end: 20220211
  7. POTASSIUM CHLORIDE [Concomitant]
     Active Substance: POTASSIUM CHLORIDE
     Indication: Hypokalaemia
     Dosage: 20 MILLIEQUIVALENTS, 1 IN 1D, ER
     Route: 048
     Dates: start: 20220207
  8. ACETAMINOPHEN [Concomitant]
     Active Substance: ACETAMINOPHEN
     Indication: Abdominal pain
     Dosage: 1000 MG, 1 IN 1 AS NEEDED
     Route: 048
     Dates: start: 20210801
  9. ONDANSETRON [Concomitant]
     Active Substance: ONDANSETRON
     Indication: Nausea
     Dosage: 8 MG, 1 IN 1 AS NEEDED
     Route: 048
     Dates: start: 20211227
  10. ONDANSETRON [Concomitant]
     Active Substance: ONDANSETRON
     Indication: Vomiting
  11. PROCHLORPERAZINE [Concomitant]
     Active Substance: PROCHLORPERAZINE
     Indication: Nausea
     Dosage: 10 MG, 1 IN 1 AS NEEDED
     Route: 048
     Dates: start: 20220207
  12. OMEPRAZOLE [Concomitant]
     Active Substance: OMEPRAZOLE
     Indication: Gastrooesophageal reflux disease
     Dosage: 20 MG, 1 IN 1 D
     Dates: start: 20220127
  13. MYLANTA [Concomitant]
     Active Substance: ALUMINUM HYDROXIDE\DIMETHICONE\MAGNESIUM HYDROXIDE
     Indication: Gastrooesophageal reflux disease
     Dosage: 10 ML, 1 IN 1 AS NEEDED
     Dates: start: 20220127
  14. LISINOPRIL AND HYDROCHLOROTHIAZIDE [Concomitant]
     Active Substance: HYDROCHLOROTHIAZIDE\LISINOPRIL
     Indication: Hypertension
     Dosage: 1 TABLET,1 IN 1 D
     Dates: start: 20140827
  15. VITAMIN D3 [Concomitant]
     Active Substance: CHOLECALCIFEROL
     Indication: Supplementation therapy
     Dosage: 5000 IU
     Route: 048
     Dates: start: 20220127
  16. VITAMIN C [Concomitant]
     Active Substance: ASCORBIC ACID
     Indication: Supplementation therapy
     Dosage: 500 MG,1 IN 1 D
     Route: 048
     Dates: start: 20220127
  17. TRAMADOL [Concomitant]
     Active Substance: TRAMADOL
     Indication: Abdominal pain
     Dosage: 50 MG, 1 IN 1, AS REQUIRED
     Route: 048
     Dates: start: 20220207
  18. TRAMADOL [Concomitant]
     Active Substance: TRAMADOL
     Indication: Flank pain

REACTIONS (5)
  - Malaise [Recovered/Resolved]
  - Back pain [Recovered/Resolved]
  - Fatigue [Recovered/Resolved]
  - Decreased appetite [Recovered/Resolved]
  - Bacteraemia [Recovered/Resolved]

NARRATIVE: CASE EVENT DATE: 20220210
